FAERS Safety Report 5093131-7 (Version None)
Quarter: 2006Q3

REPORT INFORMATION
  Report Type: 
  Country: None (occurrence: None)
  Receive Date: 20060830
  Receipt Date: 20060821
  Transmission Date: 20061208
  Serious: Yes (Other)
  Sender: FDA-Public Use
  Company Number: BR-ROCHE-460245

PATIENT
  Age: 42 Year
  Sex: Female

DRUGS (2)
  1. RIVOTRIL [Suspect]
     Route: 048
     Dates: start: 20040615
  2. HORMONE NOS [Suspect]
     Indication: DRUG USE FOR UNKNOWN INDICATION
     Route: 065

REACTIONS (1)
  - INFARCTION [None]
